FAERS Safety Report 6126533-8 (Version None)
Quarter: 2009Q1

REPORT INFORMATION
  Report Type: 
  Country: None (occurrence: None)
  Receive Date: 20090320
  Receipt Date: 20090309
  Transmission Date: 20090719
  Serious: Yes (Hospitalization)
  Sender: FDA-Public Use
  Company Number: IE-PFIZER INC-2009181463

PATIENT

DRUGS (4)
  1. SUNITINIB MALATE [Suspect]
     Indication: BREAST CANCER METASTATIC
     Dosage: 37.5 MG, 1X/DAY
     Route: 048
     Dates: start: 20081104
  2. DOCETAXEL [Suspect]
     Indication: BREAST CANCER METASTATIC
     Dosage: 130 MG, EVERY 3 WEEKS
     Route: 042
     Dates: start: 20081103
  3. DEXAMETHASONE [Concomitant]
     Dosage: 8 MG, 2X/DAY
     Dates: start: 20090308
  4. TEARS NATURALE [Concomitant]
     Dosage: 2 DROPS AS NEEDED
     Route: 047
     Dates: start: 20081222

REACTIONS (2)
  - ANOREXIA [None]
  - DYSPHAGIA [None]
